FAERS Safety Report 5806502-5 (Version None)
Quarter: 2008Q3

REPORT INFORMATION
  Report Type: 
  Country: None (occurrence: None)
  Receive Date: 20080710
  Receipt Date: 20080702
  Transmission Date: 20090109
  Serious: Yes (Other)
  Sender: FDA-Public Use
  Company Number: JP-PFIZER INC-2008055717

PATIENT
  Age: 55 Year
  Sex: Male

DRUGS (2)
  1. XALATAN [Suspect]
     Indication: INTRAOCULAR PRESSURE INCREASED
     Dosage: DAILY DOSE:1DROP-TEXT:1 DROP PER DAY
     Route: 047
     Dates: start: 20080604, end: 20080608
  2. DIAMOX SRC [Concomitant]
     Indication: MACULAR OEDEMA

REACTIONS (3)
  - INTRAOCULAR LENS DISLOCATION [None]
  - IRITIS [None]
  - POSTERIOR CAPSULE RUPTURE [None]
